APPROVED DRUG PRODUCT: TRIDIONE
Active Ingredient: TRIMETHADIONE
Strength: 150MG
Dosage Form/Route: TABLET;ORAL
Application: N005856 | Product #009
Applicant: ABBVIE INC
Approved: Approved Prior to Jan 1, 1982 | RLD: Yes | RS: No | Type: DISCN